FAERS Safety Report 5695446-8 (Version None)
Quarter: 2008Q2

REPORT INFORMATION
  Report Type: 
  Country: None (occurrence: None)
  Receive Date: 20080403
  Receipt Date: 20080326
  Transmission Date: 20081010
  Serious: Yes (Hospitalization, Other)
  Sender: FDA-Public Use
  Company Number: OPER20080034

PATIENT
  Age: 68 Year
  Sex: Female
  Weight: 61.2356 kg

DRUGS (18)
  1. OPANA ER [Suspect]
     Indication: PAIN
     Dosage: 20 MG, 1 TAB BID, OTHER
     Route: 050
     Dates: start: 20080205, end: 20080212
  2. MORPHINE [Suspect]
     Indication: PAIN
     Dosage: 10 MG, 5 CC Q 8 H PRN, OTHER
     Route: 050
  3. SLOW MAG [Concomitant]
  4. LUNESTA [Concomitant]
  5. TIGAN [Concomitant]
  6. ARICEPT [Concomitant]
  7. MIRAPEX [Concomitant]
  8. COMPAZINE [Concomitant]
  9. LISINOPRIL [Concomitant]
  10. KLONOPIN [Concomitant]
  11. VITAMIN B-12 [Concomitant]
  12. PROTONIX [Concomitant]
  13. EFFEXOR XR [Concomitant]
  14. CARAFATE [Concomitant]
  15. ATIVAN [Concomitant]
  16. NAMENDA [Concomitant]
  17. CEFTIN [Concomitant]
  18. NYSTATIN [Concomitant]

REACTIONS (4)
  - ACCIDENTAL OVERDOSE [None]
  - CONFUSIONAL STATE [None]
  - MIOSIS [None]
  - RESPIRATORY DEPRESSION [None]
